FAERS Safety Report 7511632-6 (Version None)
Quarter: 2011Q2

REPORT INFORMATION
  Report Type: 
  Country: None (occurrence: None)
  Receive Date: 20110531
  Receipt Date: 20110526
  Transmission Date: 20111010
  Serious: Yes (Life-Threatening, Hospitalization, Disabling, Other)
  Sender: FDA-Public Use
  Company Number: US-PFIZER INC-2008062775

PATIENT
  Sex: Male

DRUGS (4)
  1. HYDROCODONE [Concomitant]
     Indication: PAIN
     Dosage: UNK
     Dates: start: 20010101, end: 20100101
  2. CHANTIX [Suspect]
     Indication: SMOKING CESSATION THERAPY
     Dosage: 0.5MG/1MG
     Dates: start: 20080328, end: 20080422
  3. AMBIEN [Suspect]
     Dosage: UNK
  4. PERCOCET [Concomitant]
     Indication: PAIN
     Dosage: UNK
     Dates: start: 20010101, end: 20100101

REACTIONS (12)
  - INTENTIONAL OVERDOSE [None]
  - PERIPHERAL ISCHAEMIA [None]
  - SUICIDE ATTEMPT [None]
  - AFFECTIVE DISORDER [None]
  - PARAESTHESIA [None]
  - DEPRESSION [None]
  - ANXIETY [None]
  - INSOMNIA [None]
  - CONSTIPATION [None]
  - TINEA PEDIS [None]
  - AGITATION [None]
  - BLOOD TEST ABNORMAL [None]
